FAERS Safety Report 9464873 (Version 2)
Quarter: 2013Q3

REPORT INFORMATION
  Report Type: Spontaneous
  Country: DK (occurrence: DK)
  Receive Date: 20130819
  Receipt Date: 20130819
  Transmission Date: 20140515
  Serious: Yes (Hospitalization)
  Sender: FDA-Public Use
  Company Number: PHHY2013DK084093

PATIENT
  Age: 82 Year
  Sex: Male

DRUGS (8)
  1. MIRTAZAPIN HEXAL [Suspect]
     Indication: DEPRESSION
     Dosage: 15 MG, QD
     Route: 048
     Dates: end: 20130117
  2. SPIRIVA [Concomitant]
     Indication: CHRONIC OBSTRUCTIVE PULMONARY DISEASE
     Dosage: 18 UG, UNK
     Route: 055
  3. SYMBICORT FORTE [Concomitant]
     Indication: CHRONIC OBSTRUCTIVE PULMONARY DISEASE
     Dosage: 329 UG, UNK
     Route: 055
  4. AMLODIPIN ACTAVIS//AMLODIPINE BESILATE [Concomitant]
     Indication: HYPERTENSION
     Route: 048
  5. HJERTEMAGNYL                       /02350501/ [Concomitant]
     Indication: ANTICOAGULANT THERAPY
     Route: 048
  6. PERSANTIN [Concomitant]
     Indication: THROMBOSIS PROPHYLAXIS
     Dosage: 100 MG, UNK
     Route: 048
  7. BENADRYL//ACRIVASTINE [Concomitant]
     Indication: URTICARIA
     Route: 048
  8. PINEX                                   /DEN/ [Concomitant]
     Indication: PAIN
     Dosage: 500 MG, UNK
     Route: 048

REACTIONS (2)
  - Hypokalaemia [Recovered/Resolved]
  - Hyponatraemia [Recovered/Resolved]
